FAERS Safety Report 7517003-0 (Version None)
Quarter: 2011Q2

REPORT INFORMATION
  Report Type: 
  Country: None (occurrence: None)
  Receive Date: 20110502
  Receipt Date: 20110316
  Transmission Date: 20111010
  Serious: Yes (Hospitalization)
  Sender: FDA-Public Use
  Company Number: AMAG201100086

PATIENT
  Age: 67 Year
  Sex: Female
  Weight: 97.5 kg

DRUGS (11)
  1. FERAHEME [Suspect]
     Indication: RENAL FAILURE CHRONIC
     Dosage: 210 MG, SINGLE, INTRAVENOUS
     Route: 042
     Dates: start: 20110217, end: 20110217
  2. RESTASIS [Concomitant]
  3. TRAVATAN [Concomitant]
  4. MULTIVITAMIN [Concomitant]
  5. AZOPT [Concomitant]
  6. COUMADIN [Concomitant]
  7. METFORMIN HCL [Concomitant]
  8. ZOCOR [Concomitant]
  9. ACTOS [Concomitant]
  10. ACETAMINOPHEN [Concomitant]
  11. ACETAMINOPHEN [Concomitant]

REACTIONS (5)
  - ANAPHYLACTIC REACTION [None]
  - FEELING HOT [None]
  - LOSS OF CONSCIOUSNESS [None]
  - VOMITING [None]
  - HYPOTENSION [None]
